FAERS Safety Report 9069041 (Version 1)
Quarter: 2013Q1

REPORT INFORMATION
  Report Type: Spontaneous
  Country: US (occurrence: None)
  Receive Date: 20130213
  Receipt Date: 20130213
  Transmission Date: 20140127
  Serious: No
  Sender: FDA-Public Use
  Company Number: None

PATIENT
  Sex: Female
  Weight: 43.2 kg

DRUGS (1)
  1. CISPLATIN [Suspect]

REACTIONS (5)
  - Hypotension [None]
  - Embolic stroke [None]
  - Hyperglycaemia [None]
  - Renal failure acute [None]
  - Urinary tract infection [None]
